FAERS Safety Report 4302162-3 (Version None)
Quarter: 2004Q1

REPORT INFORMATION
  Report Type: 
  Country: None (occurrence: None)
  Receive Date: 20040220
  Receipt Date: 20040210
  Transmission Date: 20041129
  Serious: Yes (Other)
  Sender: FDA-Public Use
  Company Number: FR-JNJFOC-20040203162

PATIENT
  Age: 60 Year
  Sex: Female

DRUGS (1)
  1. RISPERDAL [Suspect]
     Indication: DELUSION
     Dosage: 2 MG, 1 IN 1 DAY, ORAL
     Route: 048

REACTIONS (1)
  - LEUKOPENIA [None]
